FAERS Safety Report 16315526 (Version 2)
Quarter: 2019Q2

REPORT INFORMATION
  Report Type: Report from Study
  Country: US (occurrence: US)
  Receive Date: 20190515
  Receipt Date: 20190604
  Transmission Date: 20190711
  Serious: Yes (Hospitalization)
  Sender: FDA-Public Use
  Company Number: US-EXELIXIS-CABO-19020084

PATIENT
  Age: 75 Year
  Sex: Male
  Weight: 61.22 kg

DRUGS (3)
  1. INSULIN [Concomitant]
     Active Substance: INSULIN NOS
  2. CABOMETYX [Suspect]
     Active Substance: CABOZANTINIB S-MALATE
     Indication: RENAL CANCER
     Dosage: 20 MG, QD (IN MORNING ON AN EMPTY STOMACH)
     Dates: start: 20190321, end: 20190418
  3. CABOMETYX [Suspect]
     Active Substance: CABOZANTINIB S-MALATE
     Dosage: 20 MG, QD (IN THE EVENING WITH FOOD)
     Dates: start: 20190426

REACTIONS (5)
  - Blood pressure increased [Recovered/Resolved]
  - Hypoglycaemia [Unknown]
  - Abdominal discomfort [Recovered/Resolved]
  - Dysphonia [Unknown]
  - Product administration error [Unknown]

NARRATIVE: CASE EVENT DATE: 20190426
